FAERS Safety Report 23283384 (Version 1)
Quarter: 2023Q4

REPORT INFORMATION
  Report Type: Spontaneous
  Country: GB (occurrence: GB)
  Receive Date: 20231211
  Receipt Date: 20231211
  Transmission Date: 20240110
  Serious: Yes (Other)
  Sender: FDA-Public Use
  Company Number: None

PATIENT
  Age: 37 Year
  Sex: Female

DRUGS (1)
  1. ENOXAPARIN SODIUM [Suspect]
     Active Substance: ENOXAPARIN SODIUM
     Indication: Thrombosis prophylaxis
     Dosage: 80 MG, QD
     Route: 058

REACTIONS (4)
  - Rash [Recovered/Resolved]
  - Contusion [Recovering/Resolving]
  - Skin fissures [Recovering/Resolving]
  - Maternal exposure during pregnancy [Unknown]
